FAERS Safety Report 4380053-X (Version None)
Quarter: 2004Q2

REPORT INFORMATION
  Report Type: 
  Country: None (occurrence: None)
  Receive Date: 20040614
  Receipt Date: 20040527
  Transmission Date: 20050107
  Serious: Yes (Hospitalization)
  Sender: FDA-Public Use
  Company Number: DSA_24479_2004

PATIENT
  Age: 45 Year
  Sex: Female

DRUGS (3)
  1. LORAZEPAM [Suspect]
     Dates: start: 20040523, end: 20040523
  2. MORPHINE SULFATE [Suspect]
     Dates: start: 20040523, end: 20040523
  3. RISPERDAL [Suspect]
     Dates: start: 20040523, end: 20040523

REACTIONS (4)
  - DRUG INEFFECTIVE [None]
  - LOSS OF CONSCIOUSNESS [None]
  - MIOSIS [None]
  - MULTIPLE DRUG OVERDOSE INTENTIONAL [None]
